FAERS Safety Report 20817673 (Version 1)
Quarter: 2022Q2

REPORT INFORMATION
  Report Type: Spontaneous
  Country: DE (occurrence: DE)
  Receive Date: 20220512
  Receipt Date: 20220512
  Transmission Date: 20220721
  Serious: Yes (Other)
  Sender: FDA-Public Use
  Company Number: DE-ALKABELLO A/S-2022AA001484

PATIENT

DRUGS (2)
  1. GRAZAX [Suspect]
     Active Substance: PHLEUM PRATENSE POLLEN
     Indication: Product used for unknown indication
     Dosage: 75000 SQ-T
     Route: 060
  2. RUPATADINE FUMARATE [Concomitant]
     Active Substance: RUPATADINE FUMARATE
     Indication: Premedication
     Route: 048

REACTIONS (5)
  - Oropharyngeal blistering [Recovered/Resolved]
  - Oral mucosal blistering [Recovered/Resolved]
  - Oral pain [Recovered/Resolved]
  - Oropharyngeal pain [Recovered/Resolved]
  - Oral mucosa erosion [Recovered/Resolved]
